FAERS Safety Report 10052285 (Version 1)
Quarter: 2014Q2

REPORT INFORMATION
  Report Type: Report from Study
  Country: US (occurrence: US)
  Receive Date: 20140402
  Receipt Date: 20140402
  Transmission Date: 20141212
  Serious: Yes (Other)
  Sender: FDA-Public Use
  Company Number: US-JNJFOC-20140314259

PATIENT
  Sex: Female
  Weight: 54.43 kg

DRUGS (6)
  1. RISPERDAL [Suspect]
     Indication: BIPOLAR DISORDER
     Dosage: ONGOING AFTER PREGNANCY
     Route: 048
  2. RISPERDAL [Suspect]
     Indication: BIPOLAR DISORDER
     Route: 048
     Dates: start: 20090723, end: 20100110
  3. MULTIVITAMINS [Concomitant]
     Route: 065
  4. FLAX SEED OIL [Concomitant]
     Route: 065
  5. CALCIUM [Concomitant]
     Route: 065
  6. FOLIC ACID [Concomitant]
     Indication: PREGNANCY
     Route: 065

REACTIONS (2)
  - Exposure during pregnancy [Recovered/Resolved]
  - Foetal death [Recovered/Resolved]
